FAERS Safety Report 8694015 (Version 2)
Quarter: 2012Q4

REPORT INFORMATION
  Report Type: 
  Country: TR (occurrence: TR)
  Receive Date: 20120731
  Receipt Date: 20121015
  Transmission Date: 20130627
  Serious: Yes (Disabling)
  Sender: FDA-Public Use
  Company Number: PHHY2012TR065140

PATIENT
  Age: 78 Year
  Sex: Female

DRUGS (1)
  1. EXELON [Suspect]
     Dosage: 4.6 mg/24 hours
     Route: 062
     Dates: start: 20120113, end: 20120725

REACTIONS (2)
  - Paraplegia [Unknown]
  - Drug ineffective [Unknown]
